FAERS Safety Report 11359076 (Version 1)
Quarter: 2015Q3

REPORT INFORMATION
  Report Type: Spontaneous
  Country: AU (occurrence: AU)
  Receive Date: 20150807
  Receipt Date: 20150807
  Transmission Date: 20151125
  Serious: Yes (Life-Threatening, Hospitalization)
  Sender: FDA-Public Use
  Company Number: AU-ROXANE LABORATORIES, INC.-2015-RO-01298RO

PATIENT
  Age: 33 Year
  Sex: Female

DRUGS (1)
  1. CLARITHROMYCIN. [Suspect]
     Active Substance: CLARITHROMYCIN
     Indication: SINUSITIS
     Route: 065

REACTIONS (3)
  - Pneumonia pseudomonal [Recovered/Resolved]
  - Staphylococcal bacteraemia [Recovered/Resolved]
  - Toxic epidermal necrolysis [Recovered/Resolved]
